FAERS Safety Report 4883195-5 (Version None)
Quarter: 2006Q1

REPORT INFORMATION
  Report Type: 
  Country: None (occurrence: None)
  Receive Date: 20060118
  Receipt Date: 20060103
  Transmission Date: 20060701
  Serious: Yes (Disabling)
  Sender: FDA-Public Use
  Company Number: 2006CG00020

PATIENT
  Age: 32 Year
  Sex: Female

DRUGS (1)
  1. ZOMIG [Suspect]
     Indication: MIGRAINE WITH AURA
     Route: 048
     Dates: start: 20000501, end: 20000101

REACTIONS (3)
  - INCORRECT DOSE ADMINISTERED [None]
  - OPTIC NERVE INJURY [None]
  - VISUAL ACUITY REDUCED [None]
